FAERS Safety Report 20894403 (Version 1)
Quarter: 2022Q2

REPORT INFORMATION
  Report Type: Spontaneous
  Country: JP (occurrence: JP)
  Receive Date: 20220531
  Receipt Date: 20220531
  Transmission Date: 20220720
  Serious: Yes (Other)
  Sender: FDA-Public Use
  Company Number: JP-ASTELLAS-2022JP007595

PATIENT
  Age: 67 Year
  Sex: Female

DRUGS (2)
  1. PADCEV [Suspect]
     Active Substance: ENFORTUMAB VEDOTIN-EJFV
     Indication: Transitional cell carcinoma
     Dosage: 1.25 MG/KG, ONCE WEEKLY X 3 TIMES FOLLOWED BY 1 WEEK REST
     Route: 041
     Dates: start: 202204
  2. PADCEV [Suspect]
     Active Substance: ENFORTUMAB VEDOTIN-EJFV
     Dosage: 1.0 MG/KG, ONCE WEEKLY X 3 TIMES FOLLOWED BY 1 WEEK REST
     Route: 041
     Dates: start: 20220523

REACTIONS (10)
  - Neutropenia [Recovering/Resolving]
  - Cellulitis [Recovering/Resolving]
  - Erythema [Recovering/Resolving]
  - Pruritus [Recovering/Resolving]
  - Anaemia [Recovering/Resolving]
  - Aspartate aminotransferase increased [Recovering/Resolving]
  - Alanine aminotransferase increased [Recovering/Resolving]
  - Sinus tachycardia [Recovering/Resolving]
  - Alopecia [Recovering/Resolving]
  - Oedema peripheral [Recovering/Resolving]
